FAERS Safety Report 19180885 (Version 1)
Quarter: 2021Q2

REPORT INFORMATION
  Report Type: Spontaneous
  Country: KR (occurrence: KR)
  Receive Date: 20210426
  Receipt Date: 20210426
  Transmission Date: 20210717
  Serious: Yes (Other)
  Sender: FDA-Public Use
  Company Number: KR-ASTRAZENECA-2021A331466

PATIENT
  Sex: Male

DRUGS (1)
  1. SYMBICORT [Suspect]
     Active Substance: BUDESONIDE\FORMOTEROL FUMARATE DIHYDRATE
     Dosage: UNKNOWN?USING FOR 3 YEARS UNKNOWN
     Route: 055

REACTIONS (3)
  - Intraocular pressure increased [Unknown]
  - Heart rate decreased [Unknown]
  - Angina pectoris [Unknown]
